FAERS Safety Report 16038472 (Version 2)
Quarter: 2019Q1

REPORT INFORMATION
  Report Type: Report from Study
  Country: US (occurrence: US)
  Receive Date: 20190305
  Receipt Date: 20190315
  Transmission Date: 20190418
  Serious: No
  Sender: FDA-Public Use
  Company Number: PHEH2019US009454

PATIENT
  Sex: Male

DRUGS (1)
  1. ENTRESTO [Suspect]
     Active Substance: SACUBITRIL\VALSARTAN
     Indication: CARDIAC FAILURE
     Dosage: 0.5 DF (SACUBITRIL 24 MG AND VALSARTAN 26 MG), BID
     Route: 065

REACTIONS (2)
  - Wrong technique in product usage process [Unknown]
  - Blood pressure decreased [Recovering/Resolving]
